FAERS Safety Report 20321372 (Version 3)
Quarter: 2022Q2

REPORT INFORMATION
  Report Type: Report from Study
  Country: JP (occurrence: JP)
  Receive Date: 20220111
  Receipt Date: 20220505
  Transmission Date: 20220721
  Serious: Yes (Hospitalization)
  Sender: FDA-Public Use
  Company Number: JP-INSMED-2021-10293-JPAA

PATIENT
  Age: 71 Year
  Sex: Female

DRUGS (1)
  1. ARIKAYCE [Suspect]
     Active Substance: AMIKACIN
     Indication: Product used for unknown indication
     Dosage: UNKNOWN
     Route: 055
     Dates: start: 20211201

REACTIONS (7)
  - Lung disorder [Unknown]
  - Somnolence [Not Recovered/Not Resolved]
  - Sputum retention [Unknown]
  - Aphonia [Recovered/Resolved]
  - Malaise [Unknown]
  - Asthenia [Unknown]
  - Product packaging difficult to open [Unknown]

NARRATIVE: CASE EVENT DATE: 20211201
